FAERS Safety Report 4953453-4 (Version None)
Quarter: 2006Q1

REPORT INFORMATION
  Report Type: 
  Country: None (occurrence: None)
  Receive Date: 20060131
  Receipt Date: 20050307
  Transmission Date: 20060701
  Serious: Yes (Hospitalization)
  Sender: FDA-Public Use
  Company Number: 8009426

PATIENT
  Age: 37 Year
  Sex: Male

DRUGS (2)
  1. KEPPRA [Suspect]
     Dosage: PO
     Route: 048
  2. SOMATROPIN [Suspect]
     Dosage: PO
     Route: 048

REACTIONS (1)
  - PSYCHOTIC DISORDER [None]
